FAERS Safety Report 9827085 (Version 1)
Quarter: 2014Q1

REPORT INFORMATION
  Report Type: Spontaneous
  Country: US (occurrence: US)
  Receive Date: 20140117
  Receipt Date: 20140117
  Transmission Date: 20141002
  Serious: No
  Sender: FDA-Public Use
  Company Number: US-GLAXOSMITHKLINE-A1032830A

PATIENT
  Age: 68 Year
  Sex: Male

DRUGS (14)
  1. PROMACTA [Suspect]
     Indication: THROMBOCYTOPENIA
     Dosage: 75MG PER DAY
     Route: 048
     Dates: start: 20130529
  2. LANTUS [Concomitant]
  3. LISINOPRIL [Concomitant]
  4. PANTOPRAZOLE [Concomitant]
  5. METFORMIN [Concomitant]
  6. ATENOLOL [Concomitant]
  7. OXYBUTYNIN [Concomitant]
  8. PIOGLITAZONE [Concomitant]
  9. ADVAIR [Concomitant]
  10. MONTELUKAST [Concomitant]
  11. HCTZ [Concomitant]
  12. FUROSEMIDE [Concomitant]
  13. ALBUTEROL SULFATE [Concomitant]
  14. MELOXICAM [Concomitant]

REACTIONS (1)
  - Diarrhoea [Unknown]
